FAERS Safety Report 12560825 (Version 1)
Quarter: 2016Q3

REPORT INFORMATION
  Report Type: Spontaneous
  Country: JP (occurrence: JP)
  Receive Date: 20160715
  Receipt Date: 20160715
  Transmission Date: 20161109
  Serious: Yes (Hospitalization)
  Sender: FDA-Public Use
  Company Number: JP-ASTELLAS-2016US026726

PATIENT
  Age: 69 Year
  Sex: Female

DRUGS (8)
  1. VORICONAZOLE. [Concomitant]
     Active Substance: VORICONAZOLE
     Indication: PRODUCT USED FOR UNKNOWN INDICATION
     Route: 065
  2. AMBISOME [Suspect]
     Active Substance: AMPHOTERICIN B
     Dosage: UNK UNK, UNKNOWN FREQ.
     Route: 037
  3. AMBISOME [Suspect]
     Active Substance: AMPHOTERICIN B
     Indication: ENCEPHALITIS
     Route: 042
  4. AMBISOME [Suspect]
     Active Substance: AMPHOTERICIN B
     Route: 042
  5. FLUCYTOSINE. [Concomitant]
     Active Substance: FLUCYTOSINE
     Indication: PRODUCT USED FOR UNKNOWN INDICATION
     Route: 065
  6. METHYLPREDNISOLONE. [Concomitant]
     Active Substance: METHYLPREDNISOLONE
     Indication: PRODUCT USED FOR UNKNOWN INDICATION
     Route: 065
  7. PREDNISOLONE. [Concomitant]
     Active Substance: PREDNISOLONE
     Indication: PRODUCT USED FOR UNKNOWN INDICATION
     Route: 065
  8. FLUCONAZOLE. [Concomitant]
     Active Substance: FLUCONAZOLE
     Indication: PRODUCT USED FOR UNKNOWN INDICATION
     Dosage: UNK UNK, UNKNOWN FREQ.
     Route: 065

REACTIONS (2)
  - Meningitis [Recovered/Resolved]
  - Off label use [Recovered/Resolved]
